FAERS Safety Report 24444181 (Version 2)
Quarter: 2024Q4

REPORT INFORMATION
  Report Type: Report from Study
  Country: US (occurrence: US)
  Receive Date: 20241016
  Receipt Date: 20241017
  Transmission Date: 20250115
  Serious: No
  Sender: ROCHE
  Company Number: US-ROCHE-2619074

PATIENT
  Age: 70 Year
  Sex: Female

DRUGS (2)
  1. RITUXAN [Suspect]
     Active Substance: RITUXIMAB
     Indication: Congenital syphilitic osteochondritis
     Route: 041
  2. RITUXAN [Suspect]
     Active Substance: RITUXIMAB
     Indication: Bacterial infection
     Dosage: INFUSE 100ML (1000MG) INTRAVENOUSLY EVERY 6 MONTHS
     Route: 041

REACTIONS (2)
  - Off label use [Unknown]
  - No adverse event [Unknown]
